FAERS Safety Report 7128424-2 (Version None)
Quarter: 2010Q4

REPORT INFORMATION
  Report Type: 
  Country: None (occurrence: None)
  Receive Date: 20101130
  Receipt Date: 20101119
  Transmission Date: 20110411
  Serious: Yes (Hospitalization)
  Sender: FDA-Public Use
  Company Number: CA-JNJFOC-20101108414

PATIENT
  Sex: Female

DRUGS (2)
  1. REMICADE [Suspect]
     Indication: CROHN'S DISEASE
     Route: 042
  2. REMICADE [Suspect]
     Route: 042

REACTIONS (5)
  - DEHYDRATION [None]
  - DIARRHOEA [None]
  - INTESTINAL OBSTRUCTION [None]
  - PAIN [None]
  - VIRAL INFECTION [None]
